FAERS Safety Report 6153772-2 (Version None)
Quarter: 2009Q2

REPORT INFORMATION
  Report Type: 
  Country: None (occurrence: None)
  Receive Date: 20090410
  Receipt Date: 20090402
  Transmission Date: 20091009
  Serious: Yes (Other)
  Sender: FDA-Public Use
  Company Number: 2009S1000082

PATIENT
  Age: 26 Year
  Sex: Female

DRUGS (11)
  1. SORIATANE [Suspect]
     Indication: PSORIASIS
     Dosage: 10 MG, QD, PO
     Route: 048
     Dates: start: 20060101, end: 20080101
  2. ALCOHOL [Suspect]
     Dosage: X1
  3. UNSPECIFIED BIRTH  CONTROL PILLS [Concomitant]
  4. UNSPECIFIED ANTIBIOTICS [Concomitant]
  5. UNSPECIFIED NASAL SPRAY [Concomitant]
  6. UNSPECIFIED EYE DROPS [Concomitant]
  7. BETAMETHASONE [Concomitant]
  8. UNSPECIFIED PAIN MEDICATION [Concomitant]
  9. UNSPECIFIED MUSCLE RELAXANT [Concomitant]
  10. CHANTIX /05703001/ [Concomitant]
  11. LOESTRIN 1.5/30 [Concomitant]

REACTIONS (6)
  - ALCOHOL USE [None]
  - DRUG EXPOSURE DURING PREGNANCY [None]
  - PHOTOSENSITIVITY REACTION [None]
  - PREGNANCY [None]
  - STAPHYLOCOCCAL INFECTION [None]
  - TREATMENT NONCOMPLIANCE [None]
